FAERS Safety Report 9820447 (Version 1)
Quarter: 2013Q4

REPORT INFORMATION
  Report Type: Spontaneous
  Country: US (occurrence: None)
  Receive Date: 20131223
  Receipt Date: 20131223
  Transmission Date: 20140711
  Serious: No
  Sender: FDA-Public Use
  Company Number: 220726

PATIENT
  Age: 64 Year
  Sex: Female

DRUGS (7)
  1. PICATO [Suspect]
     Indication: ACTINIC KERATOSIS
     Dosage: TUBE, DERMAL
     Dates: start: 20130227, end: 20130227
  2. SYNTHROID (LEVOTHYROXINE SODIUM) [Concomitant]
  3. TERBINAFINE (TERBINAFINE) [Concomitant]
  4. VERAPAMIL (VERAPAMIL) [Concomitant]
  5. LISINOPRIL (LISINOPRIL) [Concomitant]
  6. ACYCLOVIR (ACICLOVIR) [Concomitant]
  7. SERTRALINE (SERTRALINE) [Concomitant]

REACTIONS (6)
  - Application site vesicles [None]
  - Application site erythema [None]
  - Application site swelling [None]
  - Insomnia [None]
  - Drug administered at inappropriate site [None]
  - Incorrect drug administration duration [None]
